FAERS Safety Report 13542089 (Version 1)
Quarter: 2017Q2

REPORT INFORMATION
  Report Type: Not Available
  Country: FR (occurrence: FR)
  Receive Date: 20170512
  Receipt Date: 20170512
  Transmission Date: 20170830
  Serious: Yes (Other)
  Sender: FDA-Public Use
  Company Number: FR-MIDATECHPHARMA-2017-FR-000019

PATIENT
  Age: 61 Year
  Sex: Female

DRUGS (4)
  1. TACROLIMUS. [Suspect]
     Active Substance: TACROLIMUS
     Dosage: 4 MG/DAY
     Route: 065
     Dates: start: 20120914
  2. MYCOPHENOLATE MOFETIL. [Concomitant]
     Active Substance: MYCOPHENOLATE MOFETIL
     Dosage: 2 G/DAY
  3. PREDNISOLONE. [Concomitant]
     Active Substance: PREDNISOLONE
     Dosage: 20 MG/DAY
  4. ORAVIG [Suspect]
     Active Substance: MICONAZOLE
     Dosage: 50 MG/DAY
     Route: 050
     Dates: start: 20121020, end: 20121129

REACTIONS (2)
  - Toxicity to various agents [Unknown]
  - Drug interaction [Unknown]
